FAERS Safety Report 21303359 (Version 1)
Quarter: 2022Q3

REPORT INFORMATION
  Report Type: Spontaneous
  Country: NZ (occurrence: None)
  Receive Date: 20220907
  Receipt Date: 20220907
  Transmission Date: 20221026
  Serious: Yes (Other)
  Sender: FDA-Public Use
  Company Number: 2022A305058

PATIENT
  Age: 47 Year
  Sex: Female

DRUGS (1)
  1. DURVALUMAB [Suspect]
     Active Substance: DURVALUMAB
     Indication: Lung consolidation
     Route: 042
     Dates: end: 20210801

REACTIONS (2)
  - Thyroiditis [Not Recovered/Not Resolved]
  - Disease progression [Not Recovered/Not Resolved]
